FAERS Safety Report 6249006-0 (Version None)
Quarter: 2009Q2

REPORT INFORMATION
  Report Type: 
  Country: None (occurrence: None)
  Receive Date: 20090624
  Receipt Date: 20090612
  Transmission Date: 20091009
  Serious: Yes (Life-Threatening, Hospitalization)
  Sender: FDA-Public Use
  Company Number: 1000006952

PATIENT
  Age: 49 Year
  Sex: Female
  Weight: 58 kg

DRUGS (3)
  1. CITALOPRAM HYDROBROMIDE [Suspect]
     Dosage: ORAL
     Route: 048
  2. BENDROFLUMETHIAZIDE [Concomitant]
  3. TEMAZEPAM [Concomitant]

REACTIONS (3)
  - CONVULSION [None]
  - GLASGOW COMA SCALE ABNORMAL [None]
  - HYPONATRAEMIA [None]
